FAERS Safety Report 5890170-0 (Version None)
Quarter: 2008Q3

REPORT INFORMATION
  Report Type: 
  Country: None (occurrence: None)
  Receive Date: 20080919
  Receipt Date: 20080908
  Transmission Date: 20090109
  Serious: Yes (Other)
  Sender: FDA-Public Use
  Company Number: US-PFIZER INC-2008074562

PATIENT
  Sex: Female
  Weight: 55 kg

DRUGS (8)
  1. CELEBREX [Suspect]
     Indication: POST PROCEDURAL SWELLING
     Dates: start: 20080829, end: 20080905
  2. BENICAR [Interacting]
     Indication: HYPERTENSION
     Route: 048
  3. HYDROCHLOROTHIAZIDE [Interacting]
     Indication: HYPERTENSION
  4. VICODIN [Concomitant]
  5. OPHTHALMOLOGICALS [Concomitant]
  6. PRILOSEC [Concomitant]
  7. MONTELUKAST SODIUM [Concomitant]
  8. VITAMIN TAB [Concomitant]

REACTIONS (2)
  - BLOOD PRESSURE INCREASED [None]
  - DRUG INTERACTION [None]
